FAERS Safety Report 12228917 (Version 1)
Quarter: 2016Q1

REPORT INFORMATION
  Report Type: Spontaneous
  Country: US (occurrence: None)
  Receive Date: 20160331
  Receipt Date: 20160331
  Transmission Date: 20160526
  Serious: Yes (Other)
  Sender: FDA-Public Use
  Company Number: None

PATIENT
  Age: 47 Year
  Sex: Male
  Weight: 131.54 kg

DRUGS (1)
  1. CYMBALTA [Suspect]
     Active Substance: DULOXETINE HYDROCHLORIDE
     Indication: DIABETIC NEUROPATHY
     Dosage: 1 CAPSULE TWICE A  DAY
     Route: 048
     Dates: start: 20060405, end: 20160323

REACTIONS (11)
  - Emotional disorder [None]
  - Paranoia [None]
  - Blood pressure increased [None]
  - Confusional state [None]
  - Paraesthesia [None]
  - Anger [None]
  - Irritability [None]
  - Dizziness [None]
  - Helplessness [None]
  - Dyspnoea [None]
  - Eating disorder [None]

NARRATIVE: CASE EVENT DATE: 20160328
